FAERS Safety Report 9678891 (Version 1)
Quarter: 2013Q4

REPORT INFORMATION
  Report Type: Report from Study
  Country: US (occurrence: US)
  Receive Date: 20131108
  Receipt Date: 20131108
  Transmission Date: 20140711
  Serious: Yes (Hospitalization)
  Sender: FDA-Public Use
  Company Number: US-ROCHE-1301255

PATIENT
  Age: 89 Year
  Sex: Female

DRUGS (1)
  1. LUCENTIS [Suspect]
     Indication: MACULAR DEGENERATION
     Dosage: RIGHT EYE
     Route: 065

REACTIONS (5)
  - Dizziness [Unknown]
  - Blood electrolytes decreased [Unknown]
  - Fall [Unknown]
  - Drug dose omission [Unknown]
  - Visual acuity reduced [Unknown]
